FAERS Safety Report 7589477-0 (Version None)
Quarter: 2011Q2

REPORT INFORMATION
  Report Type: 
  Country: None (occurrence: None)
  Receive Date: 20110603
  Receipt Date: 20110215
  Transmission Date: 20111010
  Serious: No
  Sender: FDA-Public Use
  Company Number: 2011SP007185

PATIENT
  Age: 31 Year
  Sex: Male

DRUGS (4)
  1. SAPHRIS [Suspect]
     Indication: BIPOLAR DISORDER
     Dosage: 10 MG;QPM ; 5 MG;QPM
     Dates: end: 20110211
  2. SAPHRIS [Suspect]
     Indication: BIPOLAR DISORDER
     Dosage: 10 MG;QPM ; 5 MG;QPM
     Dates: start: 20101101
  3. LAMOTRIGINE [Concomitant]
  4. LITHOBID [Concomitant]

REACTIONS (6)
  - DIZZINESS [None]
  - RESTLESSNESS [None]
  - ASTHENIA [None]
  - UNDERDOSE [None]
  - FEELING ABNORMAL [None]
  - INAPPROPRIATE SCHEDULE OF DRUG ADMINISTRATION [None]
